FAERS Safety Report 21582768 (Version 1)
Quarter: 2022Q4

REPORT INFORMATION
  Report Type: Spontaneous
  Country: US (occurrence: US)
  Receive Date: 20221111
  Receipt Date: 20221111
  Transmission Date: 20230113
  Serious: Yes (Life-Threatening, Hospitalization)
  Sender: FDA-Public Use
  Company Number: US-STRIDES ARCOLAB LIMITED-2021SP029761

PATIENT
  Age: 20 Year
  Sex: Female

DRUGS (17)
  1. CISPLATIN [Interacting]
     Active Substance: CISPLATIN
     Indication: Gestational trophoblastic tumour
     Dosage: 20 MILLIGRAM/SQ. METER, CYCLE 1, DAY 1
     Route: 065
  2. CISPLATIN [Interacting]
     Active Substance: CISPLATIN
     Dosage: UNK, CYCLE 1, DAY 2
     Route: 065
  3. CISPLATIN [Interacting]
     Active Substance: CISPLATIN
     Dosage: UNK, CYCLE 2, DAY 1
     Route: 065
  4. CISPLATIN [Interacting]
     Active Substance: CISPLATIN
     Dosage: UNK, CYCLE 2, DAY 2
     Route: 065
  5. ETOPOSIDE [Interacting]
     Active Substance: ETOPOSIDE
     Indication: Gestational trophoblastic tumour
     Dosage: 100 MILLIGRAM/SQ. METER, CYCLICAL (CYCLE 1, DAY 1)
     Route: 065
  6. ETOPOSIDE [Interacting]
     Active Substance: ETOPOSIDE
     Dosage: UNK, CYCLE 1, DAY 2
     Route: 065
  7. ETOPOSIDE [Interacting]
     Active Substance: ETOPOSIDE
     Dosage: UNK, CYCLE 2, DAY 1
     Route: 065
  8. ETOPOSIDE [Interacting]
     Active Substance: ETOPOSIDE
     Dosage: UNK, CYCLE 2, DAY 2
     Route: 065
  9. METHOTREXATE [Suspect]
     Active Substance: METHOTREXATE
     Indication: Gestational trophoblastic tumour
     Dosage: 300 MILLIGRAM/SQ. METER (ON DAY 1)
     Route: 065
  10. HEPARIN [Concomitant]
     Active Substance: HEPARIN SODIUM
     Indication: Product used for unknown indication
     Dosage: UNK, DRIP
     Route: 065
  11. HEPARIN [Concomitant]
     Active Substance: HEPARIN SODIUM
     Indication: Product used for unknown indication
  12. SODIUM BICARBONATE [Concomitant]
     Active Substance: SODIUM BICARBONATE
     Indication: Acidosis
     Dosage: 15 MILLIMOLE PER LITRE, UNK
     Route: 065
  13. SODIUM BICARBONATE [Concomitant]
     Active Substance: SODIUM BICARBONATE
     Dosage: 26 MILLIMOLE PER LITRE, UNK
     Route: 065
  14. NOREPINEPHRINE [Concomitant]
     Active Substance: NOREPINEPHRINE
     Indication: Septic shock
     Dosage: UNK
     Route: 065
  15. DACTINOMYCIN [Concomitant]
     Active Substance: DACTINOMYCIN
     Indication: Gestational trophoblastic tumour
     Dosage: 0.5 MILLIGRAM (ON DAY 1 AND DAY 2)
     Route: 065
  16. CYCLOPHOSPHAMIDE [Concomitant]
     Active Substance: CYCLOPHOSPHAMIDE
     Indication: Gestational trophoblastic tumour
     Dosage: 600 MILLIGRAM/SQ. METER (ON DAY 8)
     Route: 065
  17. VINCRISTINE [Concomitant]
     Active Substance: VINCRISTINE
     Indication: Gestational trophoblastic tumour
     Dosage: 1 MILLIGRAM/SQ. METER (ON DAY 8)
     Route: 065

REACTIONS (6)
  - Drug-device interaction [Unknown]
  - Device failure [Unknown]
  - Thrombocytopenia [Recovered/Resolved]
  - Neutropenia [Unknown]
  - Intracardiac thrombus [Unknown]
  - Off label use [Unknown]
